FAERS Safety Report 7121982-3 (Version None)
Quarter: 2010Q4

REPORT INFORMATION
  Report Type: 
  Country: None (occurrence: None)
  Receive Date: 20101124
  Receipt Date: 20101116
  Transmission Date: 20110411
  Serious: Yes (Hospitalization)
  Sender: FDA-Public Use
  Company Number: A0874444A

PATIENT
  Age: 47 Year
  Sex: Male
  Weight: 89.1 kg

DRUGS (14)
  1. ELTROMBOPAG [Suspect]
     Indication: THROMBOCYTOPENIA
     Route: 048
     Dates: start: 20100126, end: 20100608
  2. PEG-INTRON [Suspect]
     Route: 058
     Dates: start: 20100126, end: 20100624
  3. REBETOL [Suspect]
     Route: 048
     Dates: start: 20100126, end: 20100608
  4. ELTROMBOPAG [Suspect]
     Dosage: 25MG PER DAY
     Route: 048
     Dates: start: 20100112, end: 20100125
  5. CALCIUM [Concomitant]
     Dosage: 800IU PER DAY
  6. AMPICILLIN [Concomitant]
     Dosage: 500MG THREE TIMES PER DAY
  7. MIRALAX [Concomitant]
     Dosage: 17G AS REQUIRED
  8. LEXAPRO [Concomitant]
     Dosage: 5MG PER DAY
  9. CIALIS [Concomitant]
     Dosage: 10MG AS REQUIRED
  10. GLYBURIDE [Concomitant]
     Dosage: 10MG TWICE PER DAY
  11. NEUPOGEN [Concomitant]
     Dosage: 300MCG TWO TIMES PER WEEK
  12. TRAZODONE [Concomitant]
     Dosage: 200MG AT NIGHT
  13. JANUVIA [Concomitant]
     Dosage: 100MG PER DAY
  14. NADOLOL [Concomitant]
     Dosage: 20MG PER DAY

REACTIONS (2)
  - DYSPNOEA [None]
  - PORTAL VEIN THROMBOSIS [None]
